FAERS Safety Report 23706855 (Version 2)
Quarter: 2024Q2

REPORT INFORMATION
  Report Type: Spontaneous
  Country: US (occurrence: US)
  Receive Date: 20240404
  Receipt Date: 20240521
  Transmission Date: 20240716
  Serious: No
  Sender: FDA-Public Use
  Company Number: US-002147023-NVSC2024US072017

PATIENT
  Sex: Female

DRUGS (1)
  1. ILARIS [Suspect]
     Active Substance: CANAKINUMAB
     Indication: Gout
     Dosage: 150 MG/KG, PRN
     Route: 058
     Dates: start: 20240303, end: 20240403

REACTIONS (2)
  - Contusion [Recovering/Resolving]
  - Drug interaction [Unknown]
